FAERS Safety Report 8934066 (Version 1)
Quarter: 2012Q4

REPORT INFORMATION
  Report Type: 
  Country: GB (occurrence: GB)
  Receive Date: 20121129
  Receipt Date: 20121129
  Transmission Date: 20130627
  Serious: Yes (Hospitalization)
  Sender: FDA-Public Use
  Company Number: GB-PFIZER INC-2012296875

PATIENT
  Age: 50 Year
  Sex: Male
  Weight: 86.5 kg

DRUGS (5)
  1. GENOTROPIN [Suspect]
     Dosage: 0.8 mg, 1x/day,7 injections/week
     Route: 058
     Dates: start: 20040223
  2. CALCICHEW [Concomitant]
     Indication: OSTEOPOROSIS
     Dosage: UNK
     Dates: start: 20020119
  3. SUSTANON 250 [Concomitant]
     Indication: LUTEINISING HORMONE DEFICIENCY
     Dosage: UNK
     Dates: start: 20020830
  4. SUSTANON 250 [Concomitant]
     Indication: FOLLICLE-STIMULATING HORMONE DEFICIENCY
  5. SUSTANON 250 [Concomitant]
     Indication: TESTICULAR HYPOGONADISM

REACTIONS (1)
  - Gingival disorder [Unknown]
